FAERS Safety Report 5517813-5 (Version None)
Quarter: 2007Q4

REPORT INFORMATION
  Report Type: 
  Country: None (occurrence: None)
  Receive Date: 20071113
  Receipt Date: 20071105
  Transmission Date: 20080405
  Serious: Yes (Hospitalization)
  Sender: FDA-Public Use
  Company Number: 2007SP003723

PATIENT
  Age: 73 Year
  Sex: Female

DRUGS (9)
  1. BROVANA [Suspect]
     Indication: CHRONIC OBSTRUCTIVE PULMONARY DISEASE
     Dosage: 15 UG/2ML;BID;INHALATION
     Route: 055
     Dates: start: 20070701
  2. BROVANA [Suspect]
     Indication: EMPHYSEMA
     Dosage: 15 UG/2ML;BID;INHALATION
     Route: 055
     Dates: start: 20070701
  3. ALBUTEROL [Concomitant]
  4. PREDNISONE TAB [Concomitant]
  5. METOPROLOL [Concomitant]
  6. EFFEXOR [Concomitant]
  7. WARFARIN SODIUM [Concomitant]
  8. OXYGEN [Concomitant]
  9. TIOTROPIUM BROMIDE [Concomitant]

REACTIONS (5)
  - ASTHMA [None]
  - BLOOD IRON DECREASED [None]
  - CONDITION AGGRAVATED [None]
  - HAEMORRHOIDAL HAEMORRHAGE [None]
  - INFECTION [None]
